FAERS Safety Report 15958440 (Version 1)
Quarter: 2019Q1

REPORT INFORMATION
  Report Type: Spontaneous
  Country: US (occurrence: US)
  Receive Date: 20190213
  Receipt Date: 20190213
  Transmission Date: 20190417
  Serious: No
  Sender: FDA-Public Use
  Company Number: US-EX USA HOLDINGS-EXHL20190042

PATIENT
  Sex: Female

DRUGS (1)
  1. NUVESSA [Suspect]
     Active Substance: METRONIDAZOLE
     Indication: BACTERIAL VAGINOSIS
     Dosage: 5 GRAMS
     Route: 067

REACTIONS (4)
  - Administration site odour [None]
  - Administration site discharge [None]
  - Application site pain [Recovered/Resolved]
  - Bloody discharge [Recovered/Resolved]
